FAERS Safety Report 11230234 (Version 1)
Quarter: 2015Q2

REPORT INFORMATION
  Report Type: Spontaneous
  Country: US (occurrence: None)
  Receive Date: 20150630
  Receipt Date: 20150630
  Transmission Date: 20150821
  Serious: Yes (Hospitalization, Disabling)
  Sender: FDA-Public Use
  Company Number: None

PATIENT
  Age: 41 Year
  Sex: Female
  Weight: 81.19 kg

DRUGS (7)
  1. ZOLPIDEM [Concomitant]
     Active Substance: ZOLPIDEM\ZOLPIDEM TARTRATE
  2. AMLODIPINE [Concomitant]
     Active Substance: AMLODIPINE BESYLATE
  3. RESPIDOLE [Concomitant]
  4. IUD NOS [Concomitant]
     Active Substance: COPPER OR LEVONORGESTREL
  5. IRON [Concomitant]
     Active Substance: IRON
  6. DIPHENHYDRAMINE [Concomitant]
     Active Substance: DIPHENHYDRAMINE
  7. RISPERDAL [Suspect]
     Active Substance: RISPERIDONE
     Indication: DRUG THERAPY
     Dosage: 2 BY MOUTH
     Route: 048
     Dates: start: 20131001, end: 20140901

REACTIONS (6)
  - Chest pain [None]
  - Breast pain [None]
  - Haemorrhage [None]
  - Headache [None]
  - Pain [None]
  - Back pain [None]

NARRATIVE: CASE EVENT DATE: 20140319
